FAERS Safety Report 7290162-3 (Version None)
Quarter: 2011Q1

REPORT INFORMATION
  Report Type: 
  Country: None (occurrence: None)
  Receive Date: 20110214
  Receipt Date: 20110131
  Transmission Date: 20110831
  Serious: Yes (Other)
  Sender: FDA-Public Use
  Company Number: PHHY2011AT08650

PATIENT
  Sex: Male

DRUGS (8)
  1. LEPONEX [Suspect]
     Indication: SCHIZOAFFECTIVE DISORDER
     Dosage: 50 MG, QD
     Dates: start: 20101020, end: 20101021
  2. LEPONEX [Suspect]
     Dosage: 25 MG, QD
     Dates: start: 20101111, end: 20101112
  3. TRUXAL [Concomitant]
     Dosage: 30 MG, UNK
     Dates: start: 20101011
  4. LEPONEX [Suspect]
     Dosage: 50 MG, QD
     Dates: start: 20101109, end: 20101110
  5. TRUXAL [Concomitant]
     Dosage: 45 MG, UNK
     Dates: start: 20101012, end: 20101021
  6. RISPERDAL [Concomitant]
     Dosage: 75 MG, EVERY 14 DAYS
  7. LEPONEX [Suspect]
     Dosage: 100 MG, QD
     Dates: start: 20101022, end: 20101108
  8. UNASYN [Concomitant]
     Dosage: 3 G, UNK
     Dates: start: 20101028, end: 20101108

REACTIONS (8)
  - HEPATIC STEATOSIS [None]
  - SINUS TACHYCARDIA [None]
  - PERICARDIAL EFFUSION [None]
  - PYREXIA [None]
  - EOSINOPHILIA [None]
  - WHITE BLOOD CELL COUNT INCREASED [None]
  - LIVER FUNCTION TEST ABNORMAL [None]
  - C-REACTIVE PROTEIN INCREASED [None]
